FAERS Safety Report 5271041-X (Version None)
Quarter: 2007Q1

REPORT INFORMATION
  Report Type: 
  Country: None (occurrence: None)
  Receive Date: 20070321
  Receipt Date: 20070307
  Transmission Date: 20070707
  Serious: Yes (Hospitalization)
  Sender: FDA-Public Use
  Company Number: PHEH2007US02796

PATIENT
  Age: 11 Year
  Sex: Female

DRUGS (1)
  1. CLOZARIL [Suspect]
     Dosage: 100 MG X 2 TABLETS, ONCE/SINGLE
     Route: 048
     Dates: start: 20070306, end: 20070306

REACTIONS (5)
  - ACCIDENTAL OVERDOSE [None]
  - DRUG PRESCRIBING ERROR [None]
  - HYPOTENSION [None]
  - LETHARGY [None]
  - OXYGEN SATURATION DECREASED [None]
